FAERS Safety Report 13047050 (Version 1)
Quarter: 2016Q4

REPORT INFORMATION
  Report Type: Spontaneous
  Country: US (occurrence: US)
  Receive Date: 20161220
  Receipt Date: 20161220
  Transmission Date: 20170207
  Serious: Yes (Other)
  Sender: FDA-Public Use
  Company Number: US-BAYER-2016-235038

PATIENT
  Age: 71 Year
  Sex: Female
  Weight: 90.71 kg

DRUGS (6)
  1. METFORMIN [Concomitant]
     Active Substance: METFORMIN HYDROCHLORIDE
  2. TRAMADOL. [Concomitant]
     Active Substance: TRAMADOL
  3. BLOOD PRESSURE MEDICATION (NOS) [Concomitant]
     Active Substance: UNSPECIFIED INGREDIENT
  4. ALEVE PM [Suspect]
     Active Substance: DIPHENHYDRAMINE HYDROCHLORIDE\NAPROXEN SODIUM
     Indication: PAIN
     Dosage: 1 DF, AT NIGHT AS NEEDED
     Route: 048
     Dates: end: 201609
  5. ALEVE [Suspect]
     Active Substance: NAPROXEN SODIUM
     Indication: PAIN
     Dosage: 2 DF, EVERY MORNING
     Route: 048
     Dates: start: 2011, end: 201609
  6. ADVIL [Concomitant]
     Active Substance: IBUPROFEN

REACTIONS (3)
  - Product use issue [Recovered/Resolved]
  - Product use issue [Unknown]
  - Renal injury [Unknown]

NARRATIVE: CASE EVENT DATE: 2011
